FAERS Safety Report 25929135 (Version 1)
Quarter: 2025Q4

REPORT INFORMATION
  Report Type: Spontaneous
  Country: ZA (occurrence: ZA)
  Receive Date: 20251016
  Receipt Date: 20251016
  Transmission Date: 20260117
  Serious: Yes (Other)
  Sender: SANDOZ
  Company Number: ZA-002147023-NVSC2025ZA155293

PATIENT
  Age: 7 Year
  Sex: Female
  Weight: 25 kg

DRUGS (1)
  1. RITALIN [Suspect]
     Active Substance: METHYLPHENIDATE HYDROCHLORIDE
     Indication: Psychomotor hyperactivity
     Dosage: UNK, QD (X120 MG AND 110 MG  METHYLPHENIDATE, CAPSULE)
     Route: 048
     Dates: start: 20250801

REACTIONS (2)
  - Scratch [Unknown]
  - Scab [Unknown]
